FAERS Safety Report 22737953 (Version 5)
Quarter: 2024Q1

REPORT INFORMATION
  Report Type: Spontaneous
  Country: LT (occurrence: LT)
  Receive Date: 20230721
  Receipt Date: 20240118
  Transmission Date: 20240409
  Serious: Yes (Hospitalization)
  Sender: FDA-Public Use
  Company Number: LT-BAYER-2023A097629

PATIENT
  Age: 79 Year
  Sex: Female
  Weight: 117.2 kg

DRUGS (4)
  1. RIVAROXABAN [Suspect]
     Active Substance: RIVAROXABAN
     Indication: Atrial fibrillation
     Dosage: 20 MG, QD
     Route: 048
     Dates: start: 20190221, end: 20230711
  2. FINERENONE [Suspect]
     Active Substance: FINERENONE
     Indication: Left ventricular failure
     Dosage: 40 MG, QD
     Route: 048
     Dates: start: 20210520
  3. FINERENONE [Suspect]
     Active Substance: FINERENONE
     Dosage: 20 MG, QD
     Route: 048
     Dates: start: 20230811, end: 20230817
  4. XARELTO [Concomitant]
     Active Substance: RIVAROXABAN
     Route: 048

REACTIONS (2)
  - Iron deficiency anaemia [Recovered/Resolved]
  - Iron deficiency anaemia [Recovered/Resolved]

NARRATIVE: CASE EVENT DATE: 20230712
